FAERS Safety Report 17088535 (Version 1)
Quarter: 2019Q4

REPORT INFORMATION
  Report Type: Report from Study
  Country: NL (occurrence: NL)
  Receive Date: 20191128
  Receipt Date: 20191128
  Transmission Date: 20200122
  Serious: Yes (Other)
  Sender: FDA-Public Use
  Company Number: NVSC2019NL050053

PATIENT
  Age: 28 Year
  Sex: Female

DRUGS (2)
  1. ILARIS [Suspect]
     Active Substance: CANAKINUMAB
     Dosage: 1 DF, Q4W
     Route: 058
     Dates: start: 20191125
  2. ILARIS [Suspect]
     Active Substance: CANAKINUMAB
     Indication: FAMILIAL MEDITERRANEAN FEVER
     Dosage: 1 DF, Q4W
     Route: 058
     Dates: start: 20191025

REACTIONS (4)
  - Chest pain [Unknown]
  - Pyrexia [Unknown]
  - Dyspnoea [Unknown]
  - Respiratory tract infection [Recovered/Resolved]

NARRATIVE: CASE EVENT DATE: 20191028
